FAERS Safety Report 4336394-5 (Version None)
Quarter: 2004Q2

REPORT INFORMATION
  Report Type: 
  Country: None (occurrence: None)
  Receive Date: 20040407
  Receipt Date: 20040325
  Transmission Date: 20050107
  Serious: Yes (Hospitalization)
  Sender: FDA-Public Use
  Company Number: 2004020400

PATIENT
  Age: 62 Year
  Sex: Female

DRUGS (8)
  1. ZIPRASIDONE [Suspect]
     Indication: ILL-DEFINED DISORDER
     Dosage: 20MG EVERY MORNING AND 40MG AT BEDTIME, ORAL
     Route: 048
  2. VALPROATE SODIUM [Suspect]
     Indication: ILL-DEFINED DISORDER
  3. ACETYLSALICYLIC ACID SRT [Concomitant]
  4. BENZATROPINE MESILATE (BENZATROPINE MESILATE) [Concomitant]
  5. ROSIGLITAZONE  (ROSIGLITAZONE) [Concomitant]
  6. VERAPAMIL [Concomitant]
  7. DONEPEZIL HCL [Concomitant]
  8. OXYBUTYNIN [Concomitant]

REACTIONS (7)
  - ABASIA [None]
  - CONFUSIONAL STATE [None]
  - DISORIENTATION [None]
  - DYSARTHRIA [None]
  - DYSKINESIA [None]
  - MENTAL STATUS CHANGES [None]
  - MOTOR DYSFUNCTION [None]
